FAERS Safety Report 9676451 (Version 1)
Quarter: 2013Q4

REPORT INFORMATION
  Report Type: Spontaneous
  Country: US (occurrence: US)
  Receive Date: 20131107
  Receipt Date: 20131107
  Transmission Date: 20140711
  Serious: Yes (Hospitalization)
  Sender: FDA-Public Use
  Company Number: US-GILEAD-2013-0087090

PATIENT
  Sex: Male

DRUGS (4)
  1. LETAIRIS [Suspect]
     Indication: PRODUCT USED FOR UNKNOWN INDICATION
     Dosage: 5 MG, QD
     Route: 048
     Dates: start: 20110209
  2. ADCIRCA [Concomitant]
  3. REVATIO [Concomitant]
  4. WARFARIN [Concomitant]

REACTIONS (2)
  - Blood glucose increased [Unknown]
  - Pancreatic cyst [Unknown]
